FAERS Safety Report 8668828 (Version 4)
Quarter: 2013Q1

REPORT INFORMATION
  Report Type: Spontaneous
  Country: CA (occurrence: CA)
  Receive Date: 20120717
  Receipt Date: 20130116
  Transmission Date: 20140127
  Serious: Yes (Hospitalization, Other)
  Sender: FDA-Public Use
  Company Number: PHHY2012CA060199

PATIENT
  Sex: Female

DRUGS (6)
  1. SANDOSTATIN LAR [Suspect]
     Indication: CARCINOID TUMOUR
     Dosage: 60 MG EVERY 3 WEEKS
     Route: 030
     Dates: start: 20101116, end: 20120618
  2. SANDOSTATIN LAR [Suspect]
     Dosage: 30 MG, UNK
     Route: 030
     Dates: start: 20120618
  3. SANDOSTATIN LAR [Suspect]
     Dosage: 50 MG (30-20MG) EVERY 4 WEEKS
     Route: 030
     Dates: start: 20121009, end: 20121203
  4. RAMIPRIL [Concomitant]
  5. DIGOXIN [Concomitant]
  6. ASA [Concomitant]
     Dosage: 81 MG, UNK

REACTIONS (6)
  - Gastrointestinal haemorrhage [Recovered/Resolved]
  - Intestinal ischaemia [Recovered/Resolved]
  - Abdominal pain [Recovered/Resolved]
  - Diarrhoea haemorrhagic [Recovered/Resolved]
  - Injection site mass [Recovered/Resolved]
  - Colitis ischaemic [Recovered/Resolved]
